FAERS Safety Report 5658358-1 (Version None)
Quarter: 2008Q1

REPORT INFORMATION
  Report Type: 
  Country: None (occurrence: None)
  Receive Date: 20080310
  Receipt Date: 20070419
  Transmission Date: 20080703
  Serious: No
  Sender: FDA-Public Use
  Company Number: US-BAYER-200710458BCC

PATIENT
  Age: 28 Year
  Sex: Female
  Weight: 58 kg

DRUGS (1)
  1. MIDOL [Suspect]
     Indication: DYSMENORRHOEA
     Dosage: UNIT DOSE: 220 MG
     Route: 048
     Dates: start: 20070201

REACTIONS (3)
  - ANXIETY [None]
  - CHEST DISCOMFORT [None]
  - NERVOUSNESS [None]
